FAERS Safety Report 8710426 (Version 2)
Quarter: 2013Q4

REPORT INFORMATION
  Report Type: Report from Study
  Country: US (occurrence: US)
  Receive Date: 20120807
  Receipt Date: 20131031
  Transmission Date: 20140711
  Serious: Yes (Other)
  Sender: FDA-Public Use
  Company Number: US-009507513-2012SP033031

PATIENT
  Sex: Male

DRUGS (2)
  1. PEGINTRON [Suspect]
     Indication: HEPATITIS C
     Dosage: UNK UNK
     Dates: start: 20020104, end: 20021213
  2. REBETOL [Suspect]
     Indication: HEPATITIS C
     Dosage: UNK UNK
     Dates: start: 20020104, end: 20021213

REACTIONS (2)
  - Diabetes mellitus [Unknown]
  - No therapeutic response [Unknown]
